FAERS Safety Report 12998313 (Version 6)
Quarter: 2019Q2

REPORT INFORMATION
  Report Type: Spontaneous
  Country: US (occurrence: US)
  Receive Date: 20161205
  Receipt Date: 20190415
  Transmission Date: 20190711
  Serious: No
  Sender: FDA-Public Use
  Company Number: US-PFIZER INC-2016053264

PATIENT
  Age: 59 Year
  Sex: Female
  Weight: 78 kg

DRUGS (12)
  1. NAPROSYN [Concomitant]
     Active Substance: NAPROXEN
     Dosage: 500 MG, 2X/DAY (WITH MEALS)
     Route: 048
  2. ZANAFLEX [Concomitant]
     Active Substance: TIZANIDINE HYDROCHLORIDE
     Dosage: 4 MG, AS NEEDED (EVERY 6 (SIX) HOURS)
     Route: 048
  3. LYRICA [Suspect]
     Active Substance: PREGABALIN
     Indication: INTERVERTEBRAL DISC DEGENERATION
     Dosage: 150 MG, 2X/DAY
     Route: 048
     Dates: start: 20161122
  4. LYRICA [Suspect]
     Active Substance: PREGABALIN
     Indication: LUMBAR RADICULOPATHY
     Dosage: 150 MG, 2X/DAY
     Route: 048
     Dates: start: 20151231
  5. VENTOLIN HFA [Concomitant]
     Active Substance: ALBUTEROL SULFATE
     Indication: WHEEZING
     Dosage: 90 UG, AS NEEDED (INHALE 2 PUFFS EVERY 4 (FOUR) HOURS)
  6. ULTRAM [Concomitant]
     Active Substance: TRAMADOL HYDROCHLORIDE
     Indication: PAIN
     Dosage: 50 MG, AS NEEDED (EVERY 8 (EIGHT) HOURS)
     Route: 048
  7. LYRICA [Suspect]
     Active Substance: PREGABALIN
     Indication: BACK PAIN
  8. SPIRIVA [Concomitant]
     Active Substance: TIOTROPIUM BROMIDE MONOHYDRATE
     Dosage: 18 UG, DAILY
     Route: 055
  9. ZOLOFT [Concomitant]
     Active Substance: SERTRALINE HYDROCHLORIDE
     Dosage: 100 MG, DAILY
     Route: 048
  10. CALCIUM CARBONATE AND VITAMIN D [Concomitant]
     Active Substance: CALCIUM CARBONATE\VITAMIN D
     Dosage: 1 DF, DAILY  (CALCIUM CARBONATE 600MG/VITAMIN D3 400 UNIT)
     Route: 048
  11. ZANTAC [Concomitant]
     Active Substance: RANITIDINE HYDROCHLORIDE
     Dosage: 75 MG, 1X/DAY (TAKE ONE TABLET BY MOUTH IN THE PM)
     Route: 048
  12. ZANAFLEX [Concomitant]
     Active Substance: TIZANIDINE HYDROCHLORIDE
     Dosage: 4 MG, AS NEEDED (EVERY 8 (EIGHT) HOURS)
     Route: 048

REACTIONS (1)
  - Therapeutic product effect incomplete [Unknown]
